FAERS Safety Report 7854955-3 (Version None)
Quarter: 2011Q4

REPORT INFORMATION
  Report Type: 
  Country: None (occurrence: None)
  Receive Date: 20111026
  Receipt Date: 20100427
  Transmission Date: 20120403
  Serious: No
  Sender: FDA-Public Use
  Company Number: US-BAYER-201020934NA

PATIENT
  Age: 63 Year
  Sex: Male

DRUGS (3)
  1. LEVITRA [Suspect]
     Dosage: 20 MG, UNK
     Route: 048
  2. LEVITRA [Suspect]
     Indication: SEXUAL DYSFUNCTION
     Dosage: 10 MG, UNK
     Route: 048
     Dates: start: 20090101
  3. ZOLPIDEM [Concomitant]
     Indication: SLEEP DISORDER

REACTIONS (6)
  - FLUSHING [None]
  - HEADACHE [None]
  - DRUG INEFFECTIVE [None]
  - FEELING HOT [None]
  - HEART RATE INCREASED [None]
  - OCULAR HYPERAEMIA [None]
